FAERS Safety Report 8219681-X (Version None)
Quarter: 2012Q1

REPORT INFORMATION
  Report Type: 
  Country: None (occurrence: None)
  Receive Date: 20120319
  Receipt Date: 20120309
  Transmission Date: 20120608
  Serious: Yes (Death, Other)
  Sender: FDA-Public Use
  Company Number: US-ROCHE-1049847

PATIENT
  Sex: Male

DRUGS (3)
  1. RITUXAN [Suspect]
     Indication: CHRONIC LYMPHOCYTIC LEUKAEMIA
     Dates: start: 20120202
  2. FLUDARABINE PHOSPHATE [Concomitant]
     Indication: CHRONIC LYMPHOCYTIC LEUKAEMIA
  3. CYTOXAN [Concomitant]
     Indication: CHRONIC LYMPHOCYTIC LEUKAEMIA

REACTIONS (5)
  - BLOOD PRESSURE DECREASED [None]
  - CHILLS [None]
  - DYSPNOEA [None]
  - TUMOUR LYSIS SYNDROME [None]
  - DEATH [None]
